FAERS Safety Report 5583878-8 (Version None)
Quarter: 2008Q1

REPORT INFORMATION
  Report Type: 
  Country: None (occurrence: None)
  Receive Date: 20080108
  Receipt Date: 20080102
  Transmission Date: 20080703
  Serious: Yes (Hospitalization)
  Sender: FDA-Public Use
  Company Number: FR-JNJFOC-20080100336

PATIENT
  Sex: Female

DRUGS (4)
  1. CAELYX [Suspect]
     Indication: OVARIAN CANCER
     Dosage: 4 CYCLES ADMINISTERED
     Route: 042
  2. NEULASTA [Suspect]
     Indication: OVARIAN CANCER
     Route: 058
  3. DAFALGAN [Concomitant]
     Route: 065
  4. AUGMENTIN '250' [Concomitant]
     Route: 065

REACTIONS (4)
  - ASTHENIA [None]
  - GENERAL PHYSICAL HEALTH DETERIORATION [None]
  - NIGHT SWEATS [None]
  - WEIGHT DECREASED [None]
